FAERS Safety Report 7361896-7 (Version None)
Quarter: 2011Q1

REPORT INFORMATION
  Report Type: 
  Country: None (occurrence: None)
  Receive Date: 20110318
  Receipt Date: 20110309
  Transmission Date: 20110831
  Serious: Yes (Other)
  Sender: FDA-Public Use
  Company Number: US-PFIZER INC-2011052571

PATIENT
  Sex: Male
  Weight: 81.633 kg

DRUGS (9)
  1. ROBITUSSIN [Interacting]
     Indication: RESPIRATORY TRACT CONGESTION
     Dosage: UNK
     Dates: start: 20110308
  2. CO-Q-10 [Concomitant]
     Dosage: UNK
  3. PRILOSEC [Concomitant]
     Indication: ABDOMINAL DISCOMFORT
     Dosage: 100 MG, 2X/DAY
     Route: 048
  4. VICODIN [Suspect]
  5. SEVELAMER CARBONATE [Concomitant]
     Dosage: 800 MG, 4X/DAY
  6. SERTRALINE HYDROCHLORIDE [Interacting]
     Indication: INSOMNIA
     Dosage: 50 MG, 1X/DAY
  7. SERTRALINE HYDROCHLORIDE [Interacting]
     Indication: DEPRESSION
  8. PERCOCET [Suspect]
  9. MIDODRINE [Concomitant]
     Indication: HYPERTENSION
     Dosage: 10 MG, 3X/DAY

REACTIONS (5)
  - SOMNOLENCE [None]
  - DRUG INTERACTION [None]
  - FEELING ABNORMAL [None]
  - MOANING [None]
  - FATIGUE [None]
